FAERS Safety Report 24372954 (Version 4)
Quarter: 2025Q1

REPORT INFORMATION
  Report Type: Report from Study
  Country: US (occurrence: US)
  Receive Date: 20240927
  Receipt Date: 20250129
  Transmission Date: 20250408
  Serious: No
  Sender: SUNOVION
  Company Number: US-SUMITOMO PHARMA SWITZERLAND GMBH-2024SPA002470

PATIENT

DRUGS (2)
  1. ORGOVYX [Suspect]
     Active Substance: RELUGOLIX
     Indication: Post micturition dribble
     Dosage: 360 MG, SINGLE
     Route: 048
  2. ORGOVYX [Suspect]
     Active Substance: RELUGOLIX
     Dosage: 120 MG, QD
     Route: 048
     Dates: start: 20240909

REACTIONS (9)
  - Restless legs syndrome [Unknown]
  - Oropharyngeal pain [Unknown]
  - Influenza [Unknown]
  - Weight decreased [Unknown]
  - Insomnia [Unknown]
  - Anaemia [Unknown]
  - Fatigue [Unknown]
  - Adverse event [Unknown]
  - Off label use [Unknown]
